FAERS Safety Report 21173269 (Version 2)
Quarter: 2022Q3

REPORT INFORMATION
  Report Type: Spontaneous
  Country: US (occurrence: US)
  Receive Date: 20220804
  Receipt Date: 20220825
  Transmission Date: 20221027
  Serious: Yes (Disabling)
  Sender: FDA-Public Use
  Company Number: US-PFIZER INC-202201025630

PATIENT
  Age: 37 Year
  Sex: Female

DRUGS (1)
  1. PAXLOVID [Suspect]
     Active Substance: NIRMATRELVIR\RITONAVIR
     Indication: COVID-19 treatment
     Dosage: UNK (300/100 DOSE MORNING AND EVENING BY MOUTH)
     Route: 048
     Dates: start: 20220727

REACTIONS (4)
  - Feeling hot [Not Recovered/Not Resolved]
  - Dysgeusia [Unknown]
  - Insomnia [Unknown]
  - Chills [Unknown]

NARRATIVE: CASE EVENT DATE: 20220730
